FAERS Safety Report 7065622-0 (Version None)
Quarter: 2010Q4

REPORT INFORMATION
  Report Type: 
  Country: None (occurrence: None)
  Receive Date: 20101027
  Receipt Date: 20101025
  Transmission Date: 20110411
  Serious: Yes (Disabling)
  Sender: FDA-Public Use
  Company Number: GB-WYE-G06778510

PATIENT
  Sex: Male

DRUGS (3)
  1. EFFEXOR XR [Suspect]
     Indication: DEPRESSION
     Dosage: UNKNOWN
     Dates: start: 20080101
  2. EFFEXOR XR [Suspect]
     Indication: SUICIDAL IDEATION
  3. EFFEXOR XR [Suspect]
     Dosage: UNKNOWN
     Dates: end: 20100301

REACTIONS (10)
  - AGITATION [None]
  - ANGER [None]
  - ANXIETY [None]
  - DISTURBANCE IN ATTENTION [None]
  - DRUG WITHDRAWAL SYNDROME [None]
  - HEADACHE [None]
  - MALAISE [None]
  - TREMOR [None]
  - VOMITING [None]
  - WEIGHT INCREASED [None]
